FAERS Safety Report 7381434-2 (Version None)
Quarter: 2011Q1

REPORT INFORMATION
  Report Type: 
  Country: None (occurrence: None)
  Receive Date: 20110329
  Receipt Date: 20110322
  Transmission Date: 20110831
  Serious: Yes (Hospitalization)
  Sender: FDA-Public Use
  Company Number: JP-ROCHE-754112

PATIENT
  Sex: Female
  Weight: 43 kg

DRUGS (4)
  1. RHEUMATREX [Suspect]
     Indication: RHEUMATOID ARTHRITIS
     Route: 048
     Dates: start: 20101025, end: 20101206
  2. AMARYL [Concomitant]
     Route: 048
     Dates: start: 20100901, end: 20110128
  3. ACTEMRA [Suspect]
     Indication: RHEUMATOID ARTHRITIS
     Dosage: DOSAGE IS UNCERTAIN.
     Route: 041
     Dates: start: 20101228, end: 20101228
  4. PREDNISOLONE [Concomitant]
     Route: 048
     Dates: start: 20100823

REACTIONS (1)
  - MYELODYSPLASTIC SYNDROME [None]
